FAERS Safety Report 14923381 (Version 1)
Quarter: 2018Q2

REPORT INFORMATION
  Report Type: Spontaneous
  Country: FR (occurrence: FR)
  Receive Date: 20180522
  Receipt Date: 20180522
  Transmission Date: 20180711
  Serious: Yes (Other)
  Sender: FDA-Public Use
  Company Number: FR-BAXTER-2018BAX014332

PATIENT
  Age: 26 Week
  Sex: Male
  Weight: .83 kg

DRUGS (9)
  1. PROGRAF [Suspect]
     Active Substance: TACROLIMUS\TACROLIMUS ANHYDROUS
     Indication: RENAL TRANSPLANT
     Route: 064
  2. IMUREL [Suspect]
     Active Substance: AZATHIOPRINE SODIUM
     Indication: RENAL TRANSPLANT
     Route: 064
  3. BICARBONATE DE SODIUM BAXTER A 1,4 POUR CENT, SOLUTION INJECTABLE POUR [Suspect]
     Active Substance: SODIUM BICARBONATE
     Indication: MINERAL SUPPLEMENTATION
     Route: 064
  4. TRANDATE [Suspect]
     Active Substance: LABETALOL HYDROCHLORIDE
     Indication: HYPERTENSION
     Route: 064
  5. VITAMINE B12 [Suspect]
     Active Substance: CYANOCOBALAMIN
     Indication: PRODUCT USED FOR UNKNOWN INDICATION
     Route: 064
  6. SOLUPRED (PREDNISOLONE METASULFOBENZOATE SODIUM) [Suspect]
     Active Substance: PREDNISOLONE SODIUM METAZOATE
     Indication: RENAL TRANSPLANT
     Route: 064
  7. OMEPRAZOLE. [Suspect]
     Active Substance: OMEPRAZOLE
     Indication: PRODUCT USED FOR UNKNOWN INDICATION
     Route: 064
  8. KARDEGIC [Suspect]
     Active Substance: ASPIRIN DL-LYSINE
     Indication: PROPHYLAXIS
     Route: 064
     Dates: start: 20171122
  9. FUMAFER [Suspect]
     Active Substance: FERROUS FUMARATE
     Indication: MINERAL SUPPLEMENTATION
     Route: 064

REACTIONS (2)
  - Polyhydramnios [Not Recovered/Not Resolved]
  - Congenital oesophageal anomaly [Not Recovered/Not Resolved]

NARRATIVE: CASE EVENT DATE: 20180411
